FAERS Safety Report 9997827 (Version 1)
Quarter: 2014Q1

REPORT INFORMATION
  Report Type: Report from Study
  Country: DE (occurrence: DE)
  Receive Date: 20140311
  Receipt Date: 20140311
  Transmission Date: 20141002
  Serious: No
  Sender: FDA-Public Use
  Company Number: PHHY2014DE029635

PATIENT
  Sex: Female

DRUGS (3)
  1. AMN107 [Suspect]
     Indication: CHRONIC MYELOID LEUKAEMIA
     Dosage: 600 MG, UNK
     Dates: start: 20130816
  2. EUTHYROX [Concomitant]
     Dosage: UNK
     Dates: start: 20000102
  3. LEVOCETIRIZIN [Concomitant]
     Dosage: UNK
     Dates: start: 20140123

REACTIONS (1)
  - Nasopharyngitis [Recovered/Resolved]
